FAERS Safety Report 25482921 (Version 1)
Quarter: 2025Q2

REPORT INFORMATION
  Report Type: Report from Study
  Country: CA (occurrence: CA)
  Receive Date: 20250626
  Receipt Date: 20250626
  Transmission Date: 20250717
  Serious: Yes (Other)
  Sender: SAMSUNG BIOEPIS
  Company Number: CA-SAMSUNG BIOEPIS-SB-2025-22063

PATIENT
  Age: 62 Year
  Sex: Female

DRUGS (1)
  1. RENFLEXIS [Suspect]
     Active Substance: INFLIXIMAB-ABDA
     Indication: Ankylosing spondylitis
     Route: 042
     Dates: start: 20210319

REACTIONS (2)
  - Syncope [Recovered/Resolved]
  - Eye injury [Recovered/Resolved]

NARRATIVE: CASE EVENT DATE: 20250531
